FAERS Safety Report 5912583-0 (Version None)
Quarter: 2008Q4

REPORT INFORMATION
  Report Type: 
  Country: None (occurrence: None)
  Receive Date: 20081008
  Receipt Date: 20081001
  Transmission Date: 20090506
  Serious: Yes (Death, Other)
  Sender: FDA-Public Use
  Company Number: US-CELGENEUS-163-21880-08100360

PATIENT

DRUGS (2)
  1. REVLIMID [Suspect]
     Route: 048
     Dates: start: 20070906, end: 20070101
  2. REVLIMID [Suspect]
     Route: 048
     Dates: start: 20071112, end: 20071101

REACTIONS (10)
  - COUGH [None]
  - DISEASE PROGRESSION [None]
  - FATIGUE [None]
  - FEBRILE NEUTROPENIA [None]
  - HYPERGLYCAEMIA [None]
  - HYPONATRAEMIA [None]
  - LUNG INFILTRATION [None]
  - PLATELET COUNT DECREASED [None]
  - PNEUMONIA [None]
  - WHITE BLOOD CELL COUNT DECREASED [None]
